FAERS Safety Report 23521946 (Version 2)
Quarter: 2024Q1

REPORT INFORMATION
  Report Type: Spontaneous
  Country: DE (occurrence: DE)
  Receive Date: 20240214
  Receipt Date: 20240322
  Transmission Date: 20240410
  Serious: Yes (Life-Threatening, Hospitalization)
  Sender: FDA-Public Use
  Company Number: DE-JNJFOC-20240219002

PATIENT
  Age: 65 Year
  Sex: Female
  Weight: 123 kg

DRUGS (6)
  1. OPSUMIT [Suspect]
     Active Substance: MACITENTAN
     Indication: Pulmonary arterial hypertension
     Dosage: DOSE 1 (NO UNITS REPORTED)
     Route: 048
     Dates: start: 202311, end: 20231208
  2. SILDENAFIL [Concomitant]
     Active Substance: SILDENAFIL
     Indication: Pulmonary arterial hypertension
     Dosage: 3X 20MG
     Dates: end: 20231208
  3. BISOPROLOL [Concomitant]
     Active Substance: BISOPROLOL\BISOPROLOL FUMARATE
     Indication: Cardiac failure congestive
  4. FOLIC ACID [Concomitant]
     Active Substance: FOLIC ACID
  5. APIXABAN [Concomitant]
     Active Substance: APIXABAN
     Indication: Viral infection
     Dosage: 2X 2,5MG
  6. LEVOTHYROXINE SODIUM [Concomitant]
     Active Substance: LEVOTHYROXINE SODIUM
     Indication: Hypothyroidism
     Dosage: 275UG

REACTIONS (3)
  - Hypotension [Recovered/Resolved]
  - Renal failure [Recovered/Resolved]
  - Pulmonary arterial hypertension [Recovered/Resolved]

NARRATIVE: CASE EVENT DATE: 20231208
